FAERS Safety Report 5096376-5 (Version None)
Quarter: 2006Q3

REPORT INFORMATION
  Report Type: 
  Country: None (occurrence: None)
  Receive Date: 20060728
  Receipt Date: 20060511
  Transmission Date: 20061208
  Serious: No
  Sender: FDA-Public Use
  Company Number: COT_0525_2006

PATIENT
  Age: 16 Year
  Sex: Female
  Weight: 51.3 kg

DRUGS (6)
  1. VENTAVIS [Suspect]
     Indication: PULMONARY HYPERTENSION
     Dosage: 5 MCG 5XD IH
     Dates: start: 20050901
  2. ACETAMINOPHEN [Concomitant]
  3. SILDENAFIL [Concomitant]
  4. CLONIDINE [Concomitant]
  5. DIGOXIN [Concomitant]
  6. COUMADIN [Concomitant]

REACTIONS (1)
  - PHARYNGOLARYNGEAL PAIN [None]
